FAERS Safety Report 8728045 (Version 2)
Quarter: 2012Q4

REPORT INFORMATION
  Report Type: 
  Country: US (occurrence: US)
  Receive Date: 20120817
  Receipt Date: 20121005
  Transmission Date: 20130627
  Serious: Yes (Hospitalization, Other)
  Sender: FDA-Public Use
  Company Number: US-ROXANE LABORATORIES, INC.-2012-RO-01685RO

PATIENT
  Age: 66 Year
  Sex: Male

DRUGS (12)
  1. MORPHINE [Suspect]
     Indication: PAIN
     Dosage: 60 mg
     Dates: end: 20120712
  2. SAXAGLIPTIN [Suspect]
     Indication: DIABETES MELLITUS
     Dates: start: 20120706
  3. LANTUS [Suspect]
     Indication: DIABETES MELLITUS
  4. HUMALOG [Suspect]
     Indication: DIABETES MELLITUS
     Dates: start: 20110923
  5. PLACEBO [Suspect]
     Indication: DIABETES MELLITUS
     Dates: start: 20100706
  6. VALIUM [Suspect]
     Indication: PAIN
     Dosage: 10 mg
     Dates: end: 20120712
  7. ASPIRIN [Concomitant]
     Dates: start: 20120104
  8. EZETIMIBE [Concomitant]
  9. FERROUS SULFATE [Concomitant]
     Dates: start: 20120705
  10. FOLATE [Concomitant]
     Dates: start: 20120705
  11. PREDNISONE [Concomitant]
     Dates: start: 20120705, end: 20120710
  12. AZITHROMYCIN [Concomitant]

REACTIONS (8)
  - Chronic obstructive pulmonary disease [Recovered/Resolved]
  - Hypercapnia [Recovered/Resolved]
  - Mental status changes [Recovered/Resolved]
  - Microcytosis [Recovered/Resolved]
  - Pulmonary oedema [Recovered/Resolved]
  - Anaemia folate deficiency [Recovered/Resolved]
  - Iron deficiency anaemia [Recovered/Resolved]
  - Hypoxia [Recovered/Resolved]
